FAERS Safety Report 15937833 (Version 1)
Quarter: 2019Q1

REPORT INFORMATION
  Report Type: Spontaneous
  Country: US (occurrence: US)
  Receive Date: 20190208
  Receipt Date: 20190208
  Transmission Date: 20190417
  Serious: Yes (Hospitalization, Disabling)
  Sender: FDA-Public Use
  Company Number: US-ELI_LILLY_AND_COMPANY-US201901014332

PATIENT
  Age: 59 Year
  Sex: Male

DRUGS (2)
  1. HUMALOG [Suspect]
     Active Substance: INSULIN LISPRO
     Indication: TYPE 1 DIABETES MELLITUS
     Dosage: UNK, UNKNOWN
     Route: 065
  2. LANTUS [Concomitant]
     Active Substance: INSULIN GLARGINE
     Indication: PRODUCT USED FOR UNKNOWN INDICATION

REACTIONS (13)
  - Pain [Not Recovered/Not Resolved]
  - Confusional state [Unknown]
  - Blood glucose decreased [Recovered/Resolved]
  - Vascular occlusion [Unknown]
  - Scratch [Unknown]
  - Diabetes mellitus inadequate control [Not Recovered/Not Resolved]
  - Hypoaesthesia [Unknown]
  - Diabetic neuropathy [Not Recovered/Not Resolved]
  - Gait inability [Recovering/Resolving]
  - Altered state of consciousness [Unknown]
  - Glycosylated haemoglobin increased [Recovering/Resolving]
  - Foaming at mouth [Unknown]
  - Gangrene [Unknown]

NARRATIVE: CASE EVENT DATE: 201804
